FAERS Safety Report 6954883-1 (Version None)
Quarter: 2010Q3

REPORT INFORMATION
  Report Type: 
  Country: None (occurrence: None)
  Receive Date: 20100830
  Receipt Date: 20100823
  Transmission Date: 20110219
  Serious: Yes (Other)
  Sender: FDA-Public Use
  Company Number: US-RB-014353-10

PATIENT
  Age: 30 Year
  Sex: Female

DRUGS (5)
  1. SUBOXONE [Suspect]
     Route: 060
     Dates: start: 20080201, end: 20091001
  2. SUBOXONE [Suspect]
     Indication: DRUG DEPENDENCE
     Route: 060
     Dates: start: 20091001, end: 20100101
  3. SUBOXONE [Suspect]
     Route: 060
     Dates: start: 20100101, end: 20100815
  4. EFFEXOR [Suspect]
     Indication: BIPOLAR DISORDER
     Dosage: UNKNOWN DOSING DETAILS
     Route: 065
     Dates: end: 20091001
  5. EFFEXOR [Suspect]
     Dosage: UNKNOWN DOSING DETAILS
     Route: 065
     Dates: start: 20091001, end: 20100815

REACTIONS (5)
  - ANGER [None]
  - CONVULSION [None]
  - CRYING [None]
  - DRUG WITHDRAWAL SYNDROME [None]
  - EMOTIONAL DISORDER [None]
